FAERS Safety Report 9915805 (Version 1)
Quarter: 2014Q1

REPORT INFORMATION
  Report Type: Spontaneous
  Country: US (occurrence: None)
  Receive Date: 20140219
  Receipt Date: 20140219
  Transmission Date: 20141002
  Serious: No
  Sender: FDA-Public Use
  Company Number: None

PATIENT
  Age: 62 Year
  Sex: Female
  Weight: 72.58 kg

DRUGS (9)
  1. PANTOPRAZOLE [Suspect]
     Indication: GASTROOESOPHAGEAL REFLUX DISEASE
     Route: 048
     Dates: start: 20140108, end: 20140114
  2. SYNTHROID [Concomitant]
  3. INSULIN [Concomitant]
  4. INVONANA [Concomitant]
  5. METOPROLOL [Concomitant]
  6. DIOVAN [Concomitant]
  7. ALDACTONE [Concomitant]
  8. ASA [Concomitant]
  9. GLUCOSAMINE CHRONDROITIN [Concomitant]

REACTIONS (2)
  - Drug ineffective [None]
  - Product substitution issue [None]
